FAERS Safety Report 6102918-0 (Version None)
Quarter: 2009Q1

REPORT INFORMATION
  Report Type: 
  Country: None (occurrence: None)
  Receive Date: 20090303
  Receipt Date: 20090303
  Transmission Date: 20090719
  Serious: Yes (Other)
  Sender: FDA-Public Use
  Company Number: None

PATIENT
  Sex: Female
  Weight: 58.9676 kg

DRUGS (4)
  1. YAZ [Suspect]
     Indication: ACNE
     Dosage: ONE PILL DAILY PO
     Route: 048
     Dates: start: 20061026, end: 20061209
  2. LOESTRIN 24 FE [Suspect]
     Indication: ACNE
     Dosage: ONE PILL DAILT PO
     Route: 048
     Dates: start: 20070313, end: 20070511
  3. LOESTRIN 24 FE [Suspect]
     Indication: MUSCLE SPASMS
     Dosage: ONE PILL DAILT PO
     Route: 048
     Dates: start: 20070313, end: 20070511
  4. LOESTRIN 24 FE [Concomitant]

REACTIONS (3)
  - ABNORMAL BEHAVIOUR [None]
  - CONDITION AGGRAVATED [None]
  - PREMENSTRUAL SYNDROME [None]
